FAERS Safety Report 12135069 (Version 2)
Quarter: 2016Q1

REPORT INFORMATION
  Report Type: Other
  Country: None (occurrence: CH)
  Receive Date: 20160301
  Receipt Date: 20160323
  Transmission Date: 20160526
  Serious: Yes (Death)
  Sender: FDA-Public Use
  Company Number: CH-RARE DISEASE THERAPEUTICS, INC.-1048550

PATIENT
  Age: 16 Year
  Sex: Male

DRUGS (9)
  1. METHIONINE [Concomitant]
     Active Substance: METHIONINE
  2. ENALAPRIL [Concomitant]
     Active Substance: ENALAPRIL
  3. ASPIRIN. [Concomitant]
     Active Substance: ASPIRIN
  4. CALCIUM CARBONATE. [Concomitant]
     Active Substance: CALCIUM CARBONATE
  5. CLONIDINE. [Concomitant]
     Active Substance: CLONIDINE
  6. CALCITRIOL. [Concomitant]
     Active Substance: CALCITRIOL
  7. CYSTADANE [Suspect]
     Active Substance: BETAINE
  8. HYDROXOCOBALAMIN [Concomitant]
     Active Substance: HYDROXOCOBALAMIN
  9. VITAMIN B12 [Concomitant]
     Active Substance: CYANOCOBALAMIN

REACTIONS (3)
  - Death [None]
  - Treatment noncompliance [Fatal]
  - Cerebrovascular disorder [Fatal]
